FAERS Safety Report 5352646-4 (Version None)
Quarter: 2007Q2

REPORT INFORMATION
  Report Type: 
  Country: None (occurrence: None)
  Receive Date: 20070611
  Receipt Date: 20070605
  Transmission Date: 20071010
  Serious: Yes (Hospitalization)
  Sender: FDA-Public Use
  Company Number: US-ROCHE-496388

PATIENT
  Age: 60 Year
  Sex: Female
  Weight: 125.2 kg

DRUGS (5)
  1. XENICAL [Suspect]
     Indication: OBESITY
     Route: 048
     Dates: start: 20070328, end: 20070503
  2. XENICAL [Suspect]
     Route: 048
  3. UNSPECIFIED DRUG [Concomitant]
     Dosage: REPORTED AS A BLOOD PRESSURE PILL
  4. TOPROL-XL [Concomitant]
  5. LASIX [Concomitant]

REACTIONS (7)
  - DIARRHOEA [None]
  - DIZZINESS [None]
  - GASTROINTESTINAL INFECTION [None]
  - NAUSEA [None]
  - VIRAL INFECTION [None]
  - VOMITING [None]
  - WEIGHT DECREASED [None]
